FAERS Safety Report 8138755-5 (Version None)
Quarter: 2012Q1

REPORT INFORMATION
  Report Type: 
  Country: None (occurrence: None)
  Receive Date: 20120215
  Receipt Date: 20120209
  Transmission Date: 20120608
  Serious: Yes (Hospitalization)
  Sender: FDA-Public Use
  Company Number: JP-GLAXOSMITHKLINE-B0770236A

PATIENT
  Sex: Female
  Weight: 54 kg

DRUGS (12)
  1. TYKERB [Suspect]
     Indication: BREAST CANCER
     Dosage: 1250MG PER DAY
     Route: 048
     Dates: start: 20091221
  2. MULTI-VITAMIN [Concomitant]
     Indication: CHRONIC HEPATITIS
     Route: 042
     Dates: end: 20100921
  3. FUROSEMIDE [Concomitant]
     Indication: OEDEMA
     Route: 042
     Dates: end: 20101022
  4. XELODA [Concomitant]
     Dosage: 2400MG PER DAY
     Route: 048
     Dates: start: 20100125
  5. IRON SUCROSE [Concomitant]
     Indication: IRON DEFICIENCY ANAEMIA
     Route: 042
     Dates: end: 20101021
  6. MELOXICAM [Concomitant]
     Indication: OSTEOPOROSIS
     Route: 048
     Dates: end: 20101020
  7. RISEDRONATE SODIUM [Concomitant]
     Indication: OSTEOPOROSIS
     Route: 048
     Dates: end: 20101022
  8. ELCITONIN [Concomitant]
     Indication: OSTEOPOROSIS
     Route: 030
     Dates: end: 20100921
  9. MIYA BM [Concomitant]
     Indication: DYSPEPSIA
     Route: 048
     Dates: end: 20101022
  10. CHINESE MEDICINE [Concomitant]
     Indication: GASTRITIS
     Route: 048
     Dates: end: 20101022
  11. OMEPRAZOLE [Concomitant]
     Indication: GASTROOESOPHAGEAL REFLUX DISEASE
     Route: 048
     Dates: end: 20101022
  12. BEZATATE [Concomitant]
     Indication: HYPERLIPIDAEMIA
     Route: 048
     Dates: end: 20100714

REACTIONS (1)
  - INFECTION [None]
